FAERS Safety Report 14895777 (Version 1)
Quarter: 2018Q2

REPORT INFORMATION
  Report Type: Spontaneous
  Country: US (occurrence: US)
  Receive Date: 20180427
  Receipt Date: 20180427
  Transmission Date: 20180711
  Serious: Yes (Hospitalization)
  Sender: FDA-Public Use
  Company Number: None

PATIENT
  Sex: Female
  Weight: 72.1 kg

DRUGS (2)
  1. GEMCITABINE HYDROCHLORIDE. [Suspect]
     Active Substance: GEMCITABINE HYDROCHLORIDE
     Dates: end: 20180410
  2. CISPLATIN. [Suspect]
     Active Substance: CISPLATIN
     Dates: end: 20180410

REACTIONS (7)
  - Device occlusion [None]
  - Heart rate increased [None]
  - Dyspnoea [None]
  - Pyrexia [None]
  - Chest pain [None]
  - Vomiting [None]
  - Fatigue [None]

NARRATIVE: CASE EVENT DATE: 20180422
